FAERS Safety Report 6406356-2 (Version None)
Quarter: 2009Q4

REPORT INFORMATION
  Report Type: 
  Country: None (occurrence: None)
  Receive Date: 20091019
  Receipt Date: 20091015
  Transmission Date: 20100525
  Serious: Yes (Death)
  Sender: FDA-Public Use
  Company Number: PHHY2009BR44645

PATIENT
  Sex: Female

DRUGS (5)
  1. DIOVAN [Suspect]
  2. DIOVAN HCT [Suspect]
     Dosage: 160/25 MG
  3. DIOVAN HCT [Suspect]
     Dosage: 320/25 MG
  4. RASILEZ [Suspect]
     Dosage: 150 MG
  5. RASILEZ [Suspect]
     Dosage: 300 MG

REACTIONS (1)
  - DEATH [None]
